FAERS Safety Report 9373961 (Version 3)
Quarter: 2013Q3

REPORT INFORMATION
  Report Type: Spontaneous
  Country: BR (occurrence: BR)
  Receive Date: 20130628
  Receipt Date: 20130924
  Transmission Date: 20140515
  Serious: Yes (Hospitalization, Other)
  Sender: FDA-Public Use
  Company Number: BR-ROCHE-1242486

PATIENT
  Age: 22 Year
  Sex: Male

DRUGS (1)
  1. ROACUTAN [Suspect]
     Indication: PRODUCT USED FOR UNKNOWN INDICATION
     Route: 065
     Dates: start: 201301, end: 201305

REACTIONS (14)
  - Sepsis [Unknown]
  - Large intestine perforation [Unknown]
  - Pancreatitis [Unknown]
  - Gallbladder disorder [Unknown]
  - Colitis [Unknown]
  - Small intestinal perforation [Unknown]
  - Infection [Unknown]
  - Pulmonary vasculitis [Unknown]
  - Pilonidal cyst [Unknown]
  - Granulomatosis with polyangiitis [Recovered/Resolved]
  - Large intestinal haemorrhage [Unknown]
  - Pulmonary mass [Unknown]
  - Intestinal perforation [Recovering/Resolving]
  - Granulomatosis with polyangiitis [Unknown]
